FAERS Safety Report 5928776-2 (Version None)
Quarter: 2008Q4

REPORT INFORMATION
  Report Type: 
  Country: None (occurrence: None)
  Receive Date: 20081023
  Receipt Date: 20081023
  Transmission Date: 20090506
  Serious: No
  Sender: FDA-Public Use
  Company Number: None

PATIENT
  Age: 44 Year
  Sex: Female
  Weight: 74.8435 kg

DRUGS (1)
  1. LAMOTRIGINE [Suspect]
     Indication: CONVULSION
     Dosage: 150MG BID PO
     Route: 048
     Dates: start: 20080813, end: 20080822

REACTIONS (2)
  - PRODUCT QUALITY ISSUE [None]
  - RASH MACULO-PAPULAR [None]
